FAERS Safety Report 15165376 (Version 1)
Quarter: 2018Q3

REPORT INFORMATION
  Report Type: Spontaneous
  Country: PT (occurrence: PT)
  Receive Date: 20180719
  Receipt Date: 20180719
  Transmission Date: 20181010
  Serious: Yes (Life-Threatening, Hospitalization, Other)
  Sender: FDA-Public Use
  Company Number: PT-AUROBINDO-AUR-APL-2018-034960

PATIENT
  Age: 61 Year
  Sex: Female

DRUGS (6)
  1. SIMVASTATIN. [Concomitant]
     Active Substance: SIMVASTATIN
     Indication: DYSLIPIDAEMIA
  2. TORASEMIDE [Concomitant]
     Active Substance: TORSEMIDE
     Indication: HYPERTENSION
  3. CARVEDILOL. [Suspect]
     Active Substance: CARVEDILOL
     Indication: HYPERTENSION
     Route: 065
  4. DILTIAZEM. [Interacting]
     Active Substance: DILTIAZEM
     Indication: HYPERTENSION
     Route: 065
  5. RILMENIDINE [Concomitant]
     Active Substance: RILMENIDINE
     Indication: HYPERTENSION
  6. SPIRONOLACTONE. [Concomitant]
     Active Substance: SPIRONOLACTONE
     Indication: HYPERTENSION

REACTIONS (7)
  - Hyperkalaemia [Recovered/Resolved]
  - Hepatic function abnormal [Recovered/Resolved]
  - Cardiac arrest [Recovered/Resolved]
  - Renal disorder [Recovered/Resolved]
  - Drug interaction [Recovered/Resolved]
  - Cardiogenic shock [Recovered/Resolved]
  - Bradycardia [Recovered/Resolved]
